FAERS Safety Report 8953209 (Version 1)
Quarter: 2012Q4

REPORT INFORMATION
  Report Type: Report from Study
  Country: US (occurrence: US)
  Receive Date: 20121206
  Receipt Date: 20121206
  Transmission Date: 20130627
  Serious: No
  Sender: FDA-Public Use
  Company Number: US-009507513-1211USA007377

PATIENT
  Age: 37 Year
  Sex: Female

DRUGS (4)
  1. ISENTRESS [Suspect]
     Route: 048
  2. TRUVADA [Suspect]
     Indication: HIV INFECTION
     Dosage: 1 DF, qd
     Route: 048
  3. TRIZIVIR [Concomitant]
  4. LOPINAVIR (+) RITONAVIR [Concomitant]
     Dosage: UNK
     Dates: start: 20110811

REACTIONS (2)
  - Ultrasound antenatal screen abnormal [Unknown]
  - Pregnancy [Recovered/Resolved]
